FAERS Safety Report 21908284 (Version 3)
Quarter: 2023Q1

REPORT INFORMATION
  Report Type: Report from Study
  Country: US (occurrence: US)
  Receive Date: 20230125
  Receipt Date: 20230217
  Transmission Date: 20230418
  Serious: Yes (Hospitalization)
  Sender: FDA-Public Use
  Company Number: US-EXELIXIS-XL18423059849

PATIENT

DRUGS (2)
  1. CABOZANTINIB [Suspect]
     Active Substance: CABOZANTINIB
     Indication: Rectal cancer metastatic
     Dosage: 40 MG, QD
     Route: 048
     Dates: start: 20221026
  2. NIVOLUMAB [Suspect]
     Active Substance: NIVOLUMAB
     Indication: Rectal cancer metastatic
     Dosage: 480 MG, Q28D
     Route: 041
     Dates: start: 20221026

REACTIONS (1)
  - Cholecystitis acute [Unknown]

NARRATIVE: CASE EVENT DATE: 20230119
